FAERS Safety Report 7352154-5 (Version None)
Quarter: 2011Q1

REPORT INFORMATION
  Report Type: 
  Country: None (occurrence: None)
  Receive Date: 20110309
  Receipt Date: 20110309
  Transmission Date: 20110831
  Serious: No
  Sender: FDA-Public Use
  Company Number: None

PATIENT
  Age: 55 Year
  Sex: Female

DRUGS (1)
  1. RECRECLAST -ZOLEDRONIC ACID- 5 MG/100 ML NOVARTIS PHARMACEUTICAL CORP [Suspect]
     Indication: OSTEOPOROSIS
     Dosage: 5MG OVER 15 MINUTES IV
     Route: 042
     Dates: start: 20110205, end: 20110205

REACTIONS (5)
  - PYREXIA [None]
  - GASTROINTESTINAL DISORDER [None]
  - OESOPHAGITIS [None]
  - MYALGIA [None]
  - CHILLS [None]
